FAERS Safety Report 6567877-5 (Version None)
Quarter: 2010Q1

REPORT INFORMATION
  Report Type: 
  Country: None (occurrence: None)
  Receive Date: 20100203
  Receipt Date: 20100120
  Transmission Date: 20100710
  Serious: Yes (Hospitalization, Other)
  Sender: FDA-Public Use
  Company Number: PHHY2010AT03676

PATIENT
  Age: 38 Year
  Sex: Female

DRUGS (5)
  1. LEPONEX [Suspect]
     Dosage: UNK
     Dates: start: 20090501
  2. DEPAKENE [Suspect]
     Dosage: 800 MG, UNK
     Dates: start: 20080101
  3. SEROQUEL [Suspect]
     Dosage: 300 MG, UNK
     Dates: start: 20090501, end: 20090606
  4. SEROQUEL [Suspect]
     Dosage: 200 MG, UNK
     Dates: start: 20090607, end: 20090611
  5. SEROQUEL [Suspect]
     Dosage: 150 MG, UNK
     Dates: start: 20090612

REACTIONS (8)
  - CEREBRAL INFARCTION [None]
  - CONFUSIONAL STATE [None]
  - HAEMATOMA [None]
  - HAEMORRHAGIC DISORDER [None]
  - INJURY [None]
  - OPTIC NEURITIS [None]
  - SUBDURAL EFFUSION [None]
  - VISUAL FIELD DEFECT [None]
